FAERS Safety Report 6345008-4 (Version None)
Quarter: 2009Q3

REPORT INFORMATION
  Report Type: 
  Country: None (occurrence: None)
  Receive Date: 20090909
  Receipt Date: 20090902
  Transmission Date: 20100115
  Serious: Yes (Death, Hospitalization)
  Sender: FDA-Public Use
  Company Number: US-BIOGENIDEC-2008BI020609

PATIENT
  Age: 49 Year
  Sex: Female

DRUGS (1)
  1. TYSABRI [Suspect]
     Indication: MULTIPLE SCLEROSIS
     Route: 042
     Dates: start: 20080327, end: 20080718

REACTIONS (6)
  - AMNESIA [None]
  - BLINDNESS UNILATERAL [None]
  - GLIOBLASTOMA [None]
  - MOTOR DYSFUNCTION [None]
  - RESIDUAL URINE [None]
  - STATUS EPILEPTICUS [None]
